FAERS Safety Report 5152696-7 (Version None)
Quarter: 2006Q4

REPORT INFORMATION
  Report Type: 
  Country: None (occurrence: None)
  Receive Date: 20061109
  Receipt Date: 20061026
  Transmission Date: 20070319
  Serious: Yes (Hospitalization)
  Sender: FDA-Public Use
  Company Number: 200610252BBE

PATIENT
  Age: 1 Month
  Sex: Male
  Weight: 5.04 kg

DRUGS (15)
  1. THROMBATE III [Suspect]
     Indication: KAWASAKI'S DISEASE
     Dosage: 340 U, TOTAL DAILY; 450 U, TOTAL DAILY,
     Dates: start: 20011027, end: 20011029
  2. THROMBATE III [Suspect]
     Indication: PERIPHERAL ISCHAEMIA
     Dosage: 340 U, TOTAL DAILY; 450 U, TOTAL DAILY,
     Dates: start: 20011027, end: 20011029
  3. THROMBATE III [Suspect]
     Indication: KAWASAKI'S DISEASE
     Dosage: 340 U, TOTAL DAILY; 450 U, TOTAL DAILY,
     Dates: start: 20011103, end: 20011104
  4. THROMBATE III [Suspect]
     Indication: PERIPHERAL ISCHAEMIA
     Dosage: 340 U, TOTAL DAILY; 450 U, TOTAL DAILY,
     Dates: start: 20011103, end: 20011104
  5. ASPIRIN [Suspect]
     Indication: KAWASAKI'S DISEASE
     Dosage: 80 MG/KG, QD,
  6. POLYGAM [Suspect]
     Indication: KAWASAKI'S DISEASE
     Dosage: 10 G, TOTAL DAILY, 10 G, TOTAL DAILY,
     Dates: start: 20011026, end: 20011027
  7. POLYGAM [Suspect]
     Indication: KAWASAKI'S DISEASE
     Dosage: 10 G, TOTAL DAILY, 10 G, TOTAL DAILY,
     Dates: start: 20011103, end: 20011104
  8. DIPYRIDAMOLE [Suspect]
     Indication: KAWASAKI'S DISEASE
  9. DIPYRIDAMOLE [Suspect]
     Indication: PERIPHERAL ISCHAEMIA
  10. HEPARIN [Suspect]
     Indication: KAWASAKI'S DISEASE
  11. NITROGLYCERIN [Suspect]
     Indication: KAWASAKI'S DISEASE
     Dosage: TOPICAL
     Route: 061
  12. METHYLPREDNISOLONE [Suspect]
     Indication: KAWASAKI'S DISEASE
  13. REOPRO [Suspect]
     Indication: KAWASAKI'S DISEASE
  14. OXYGEN [Concomitant]
  15. ANTIBIOTICS [Concomitant]

REACTIONS (20)
  - CLOSTRIDIAL INFECTION [None]
  - COARCTATION OF THE AORTA [None]
  - CORONARY ARTERY DILATATION [None]
  - DISEASE PROGRESSION [None]
  - DRUG INEFFECTIVE [None]
  - ELECTROCARDIOGRAM ST SEGMENT ELEVATION [None]
  - ENTEROBACTER INFECTION [None]
  - FEEDING DISORDER [None]
  - FINGER AMPUTATION [None]
  - FOOD INTOLERANCE [None]
  - FOOT AMPUTATION [None]
  - GANGRENE [None]
  - HYPERTENSION [None]
  - LEG AMPUTATION [None]
  - LEUKOCYTOSIS [None]
  - PERIPHERAL ISCHAEMIA [None]
  - POOR PERIPHERAL CIRCULATION [None]
  - RELAPSING FEVER [None]
  - VENTRICULAR HYPERTROPHY [None]
  - VENTRICULAR TACHYCARDIA [None]
